FAERS Safety Report 14344247 (Version 1)
Quarter: 2018Q1

REPORT INFORMATION
  Report Type: Spontaneous
  Country: US (occurrence: US)
  Receive Date: 20180102
  Receipt Date: 20180102
  Transmission Date: 20180509
  Serious: Yes (Death, Other)
  Sender: FDA-Public Use
  Company Number: US-009507513-1712USA014617

PATIENT
  Age: 37 Year
  Sex: Female

DRUGS (6)
  1. LURASIDONE HYDROCHLORIDE [Suspect]
     Active Substance: LURASIDONE HYDROCHLORIDE
  2. PRINIVIL [Suspect]
     Active Substance: LISINOPRIL
     Route: 048
  3. DULOXETINE HYDROCHLORIDE. [Suspect]
     Active Substance: DULOXETINE HYDROCHLORIDE
  4. BUPROPION HYDROCHLORIDE. [Suspect]
     Active Substance: BUPROPION HYDROCHLORIDE
  5. ALPRAZOLAM. [Suspect]
     Active Substance: ALPRAZOLAM
  6. NEBIVOLOL. [Suspect]
     Active Substance: NEBIVOLOL

REACTIONS (1)
  - Death [Fatal]
